FAERS Safety Report 8265103-2 (Version None)
Quarter: 2012Q2

REPORT INFORMATION
  Report Type: 
  Country: None (occurrence: None)
  Receive Date: 20120406
  Receipt Date: 20120402
  Transmission Date: 20120825
  Serious: No
  Sender: FDA-Public Use
  Company Number: US-PFIZER INC-2012083303

PATIENT
  Sex: Female
  Weight: 95.238 kg

DRUGS (4)
  1. ACCUPRIL [Concomitant]
     Indication: HYPERTENSION
     Dosage: UNK
     Route: 048
  2. TRILIPIX [Suspect]
     Indication: BLOOD CHOLESTEROL ABNORMAL
     Dosage: UNK
     Route: 048
  3. METFORMIN [Concomitant]
     Indication: DIABETES MELLITUS
     Dosage: 750 MG, 2X/DAY
  4. IBUPROFEN (ADVIL) [Suspect]
     Indication: ARTHRITIS
     Dosage: UNK, AS NEEDED
     Route: 048

REACTIONS (4)
  - HEADACHE [None]
  - POOR QUALITY DRUG ADMINISTERED [None]
  - BLOOD CHOLESTEROL INCREASED [None]
  - MYALGIA [None]
